FAERS Safety Report 24677084 (Version 1)
Quarter: 2024Q4

REPORT INFORMATION
  Report Type: Spontaneous
  Country: US (occurrence: US)
  Receive Date: 20241129
  Receipt Date: 20241129
  Transmission Date: 20250115
  Serious: No
  Sender: CIPLA
  Company Number: US-CIPLA LTD.-2024US08253

PATIENT

DRUGS (2)
  1. GABAPENTIN [Suspect]
     Active Substance: GABAPENTIN
     Indication: Spinal stenosis
     Dosage: 100 MILLIGRAM, QID
     Route: 065
  2. GABAPENTIN [Suspect]
     Active Substance: GABAPENTIN
     Indication: Back pain

REACTIONS (1)
  - Off label use [Unknown]
